FAERS Safety Report 13911919 (Version 1)
Quarter: 2017Q3

REPORT INFORMATION
  Report Type: Spontaneous
  Country: US (occurrence: US)
  Receive Date: 20170824
  Receipt Date: 20170824
  Transmission Date: 20171127
  Serious: Yes (Disabling)
  Sender: FDA-Public Use
  Company Number: None

PATIENT
  Age: 64 Year
  Sex: Female
  Weight: 148.5 kg

DRUGS (17)
  1. VITAMIN D [Concomitant]
     Active Substance: CHOLECALCIFEROL
  2. CINNAMON CAPSULES [Concomitant]
  3. POTASSIUM GLUCONATE [Concomitant]
     Active Substance: POTASSIUM GLUCONATE
  4. VITAMIN B COMPLEX [Concomitant]
     Active Substance: CYANOCOBALAMIN\DEXPANTHENOL\NIACINAMIDE\PYRIDOXINE HYDROCHLORIDE\RIBOFLAVIN 5^-PHOSPHATE SODIUM\THIAMINE HYDROCHLORIDE\VITAMIN B COMPLEX
  5. JANUVIA [Concomitant]
     Active Substance: SITAGLIPTIN PHOSPHATE
  6. ZETIA [Concomitant]
     Active Substance: EZETIMIBE
  7. LOSARTAN. [Concomitant]
     Active Substance: LOSARTAN
  8. MULTIVITAMIN [Concomitant]
     Active Substance: VITAMINS
  9. CERAVE ITCH RELIEF MOISTURIZING [Suspect]
     Active Substance: PRAMOXINE HYDROCHLORIDE
     Indication: PRURITUS
     Route: 061
     Dates: start: 20170823, end: 20170823
  10. EXCEDRIN [Concomitant]
     Active Substance: ACETAMINOPHEN\ASPIRIN\CAFFEINE
  11. METFORMIN [Concomitant]
     Active Substance: METFORMIN HYDROCHLORIDE
  12. VITAMIN C [Concomitant]
     Active Substance: ASCORBIC ACID
  13. IRON [Concomitant]
     Active Substance: IRON
  14. FISH OIL [Concomitant]
     Active Substance: FISH OIL
  15. BIOTIN [Concomitant]
     Active Substance: BIOTIN
  16. ASPIRIN. [Concomitant]
     Active Substance: ASPIRIN
  17. BENADRYL [Concomitant]
     Active Substance: DIPHENHYDRAMINE HYDROCHLORIDE

REACTIONS (4)
  - Application site erythema [None]
  - Application site burn [None]
  - Application site pruritus [None]
  - Application site rash [None]

NARRATIVE: CASE EVENT DATE: 20170823
